FAERS Safety Report 6011183-4 (Version None)
Quarter: 2008Q4

REPORT INFORMATION
  Report Type: 
  Country: None (occurrence: None)
  Receive Date: 20081218
  Receipt Date: 20081204
  Transmission Date: 20090506
  Serious: Yes (Death)
  Sender: FDA-Public Use
  Company Number: GB-MERCK-0812GBR00026

PATIENT
  Age: 77 Year
  Sex: Male

DRUGS (10)
  1. DECADRON [Suspect]
     Indication: APPETITE DISORDER
     Route: 065
     Dates: start: 20070620
  2. DECADRON [Suspect]
     Indication: ASTHENIA
     Route: 065
     Dates: start: 20070620
  3. AMOXICILLIN [Concomitant]
     Route: 065
  4. DIACETYLMORPHINE [Concomitant]
     Route: 065
  5. INTERFERON (UNSPECIFIED) [Concomitant]
     Indication: RENAL CANCER
     Route: 065
     Dates: start: 20070620
  6. MIDAZOLAM [Concomitant]
     Route: 065
  7. NYSTATIN [Concomitant]
     Indication: ORAL CANDIDIASIS
     Route: 048
  8. SUNITINIB MALATE [Concomitant]
     Indication: ANOREXIA
     Route: 065
     Dates: start: 20070701
  9. SUNITINIB MALATE [Concomitant]
     Indication: DIARRHOEA
     Route: 065
     Dates: start: 20070701
  10. SUNITINIB MALATE [Concomitant]
     Indication: FATIGUE
     Route: 065
     Dates: start: 20070701

REACTIONS (3)
  - DEATH [None]
  - MUCOSAL ULCERATION [None]
  - PNEUMONIA ASPIRATION [None]
